FAERS Safety Report 9842945 (Version 2)
Quarter: 2014Q1

REPORT INFORMATION
  Report Type: Spontaneous
  Country: US (occurrence: US)
  Receive Date: 20140124
  Receipt Date: 20140129
  Transmission Date: 20141002
  Serious: No
  Sender: FDA-Public Use
  Company Number: US-EISAI INC-AP356-00401-SPO-US

PATIENT
  Age: 69 Year
  Sex: Male
  Weight: 129.55 kg

DRUGS (5)
  1. BELVIQ (LORCASERIN HYDROCHLORIDE) [Suspect]
     Indication: WEIGHT DECREASED
     Route: 048
     Dates: start: 201311
  2. BENICAR [Concomitant]
     Indication: HYPERTENSION
     Dosage: UNKNOWN
  3. NORVASC [Concomitant]
     Indication: HYPERTENSION
  4. METFORMIN [Concomitant]
     Indication: TYPE 2 DIABETES MELLITUS
     Route: 048
  5. GLIPIZIDE [Concomitant]
     Indication: TYPE 2 DIABETES MELLITUS
     Route: 048

REACTIONS (1)
  - Euphoric mood [Not Recovered/Not Resolved]
